FAERS Safety Report 23330077 (Version 1)
Quarter: 2023Q4

REPORT INFORMATION
  Report Type: Spontaneous
  Country: US (occurrence: US)
  Receive Date: 20231222
  Receipt Date: 20231222
  Transmission Date: 20240109
  Serious: No
  Sender: FDA-Public Use
  Company Number: US-AMGEN-USASP2023224660

PATIENT
  Age: 63 Year
  Sex: Female

DRUGS (15)
  1. OTEZLA [Suspect]
     Active Substance: APREMILAST
     Indication: Psoriatic arthropathy
     Dosage: 30 MILLIGRAM, BID
     Route: 048
  2. AMITRIPTYLINE [Concomitant]
     Active Substance: AMITRIPTYLINE
     Dosage: 10 MILLIGRAM
  3. BISOPROLOL FUMARATE [Concomitant]
     Active Substance: BISOPROLOL FUMARATE
     Dosage: 5 MILLIGRAM
  4. BUSPIRONE [Concomitant]
     Active Substance: BUSPIRONE HYDROCHLORIDE
     Dosage: 15 MILLIGRAM
  5. CELECOXIB [Concomitant]
     Active Substance: CELECOXIB
     Dosage: 200 MILLIGRAM
  6. COSENTYX [Concomitant]
     Active Substance: SECUKINUMAB
     Dosage: 150 MILLIGRAM
  7. ESCITALOPRAM [Concomitant]
     Active Substance: ESCITALOPRAM OXALATE
     Dosage: 20 MILLIGRAM
  8. GEMFIBROZIL [Concomitant]
     Active Substance: GEMFIBROZIL
     Dosage: 600 MILLIGRAM
  9. HUMIRA [Concomitant]
     Active Substance: ADALIMUMAB
     Dosage: 40 MILLIGRAM/0.4 MILLILITER PEN (2=2)
  10. LEVOTHYROXINE [Concomitant]
     Active Substance: LEVOTHYROXINE
     Dosage: 50 MICROGRAM
  11. OMEPRAZOLE [Concomitant]
     Active Substance: OMEPRAZOLE
     Dosage: 40 MILLIGRAM
  12. OXYBUTYNIN [Concomitant]
     Active Substance: OXYBUTYNIN
     Dosage: 15 MILLIGRAM
  13. PENNSAID [Concomitant]
     Active Substance: DICLOFENAC SODIUM
  14. TRAZODONE [Concomitant]
     Active Substance: TRAZODONE HYDROCHLORIDE
     Dosage: 150 MILLIGRAM
  15. HYDROCHLOROTHIAZIDE\TRIAMTERENE [Concomitant]
     Active Substance: HYDROCHLOROTHIAZIDE\TRIAMTERENE
     Dosage: 37.5-25

REACTIONS (4)
  - Pain [Unknown]
  - Product use issue [Unknown]
  - Feeling jittery [Unknown]
  - Nervousness [Unknown]

NARRATIVE: CASE EVENT DATE: 20231214
